FAERS Safety Report 15243155 (Version 1)
Quarter: 2018Q3

REPORT INFORMATION
  Report Type: Spontaneous
  Country: IN (occurrence: IN)
  Receive Date: 20180806
  Receipt Date: 20180806
  Transmission Date: 20181010
  Serious: Yes (Hospitalization, Other)
  Sender: FDA-Public Use
  Company Number: IN-LUPIN LIMITED-2018-05486

PATIENT
  Age: 60 Year
  Sex: Female

DRUGS (9)
  1. RISPERIDONE. [Interacting]
     Active Substance: RISPERIDONE
     Dosage: UNK
     Route: 065
     Dates: start: 2014, end: 2014
  2. DONEPEZIL. [Suspect]
     Active Substance: DONEPEZIL
     Indication: SCHIZOPHRENIA
     Dosage: 10 MG, QD (FOR PST 7 MONTHS)
     Route: 065
  3. PIRACETAM [Interacting]
     Active Substance: PIRACETAM
     Indication: SCHIZOPHRENIA
     Dosage: 800 MG, QD
     Route: 065
  4. RISPERIDONE. [Interacting]
     Active Substance: RISPERIDONE
     Dosage: 0.5 MG, QD
     Route: 065
  5. RISPERIDONE. [Interacting]
     Active Substance: RISPERIDONE
     Indication: SCHIZOPHRENIA
     Dosage: UNK
     Route: 065
     Dates: start: 2002, end: 2002
  6. CITICOLINE [Interacting]
     Active Substance: CITICOLINE
     Indication: SCHIZOPHRENIA
     Dosage: 500 MG, QD
     Route: 065
  7. CLOBAZAM [Concomitant]
     Active Substance: CLOBAZAM
     Indication: SEIZURE
     Dosage: 10 MG, QD
     Route: 065
  8. OXCARBAZEPINE. [Concomitant]
     Active Substance: OXCARBAZEPINE
     Indication: SEIZURE
     Dosage: 600 MG, BID
     Route: 065
  9. OLMESARTAN [Concomitant]
     Active Substance: OLMESARTAN
     Indication: HYPERTENSION
     Dosage: 20 MG, QD
     Route: 065

REACTIONS (3)
  - Drug interaction [Unknown]
  - Neuroleptic malignant syndrome [Recovered/Resolved]
  - Condition aggravated [Recovered/Resolved]
